FAERS Safety Report 8404861 (Version 2)
Quarter: 2013Q4

REPORT INFORMATION
  Report Type: Spontaneous
  Country: US (occurrence: US)
  Receive Date: 20120214
  Receipt Date: 20131202
  Transmission Date: 20140711
  Serious: Yes (Other)
  Sender: FDA-Public Use
  Company Number: US-ROCHE-793554

PATIENT
  Age: 45 Year
  Sex: Female
  Weight: 48.12 kg

DRUGS (4)
  1. ACCUTANE [Suspect]
     Indication: ACNE
     Route: 065
  2. ACCUTANE [Suspect]
     Route: 065
  3. PROZAC [Concomitant]
  4. DICYCLOMINE [Concomitant]

REACTIONS (4)
  - Inflammatory bowel disease [Unknown]
  - Irritable bowel syndrome [Unknown]
  - Colon cancer [Unknown]
  - Depression [Unknown]
